FAERS Safety Report 10448156 (Version 2)
Quarter: 2014Q3

REPORT INFORMATION
  Report Type: Spontaneous
  Country: PR (occurrence: PR)
  Receive Date: 20140911
  Receipt Date: 20140923
  Transmission Date: 20150326
  Serious: Yes (Hospitalization)
  Sender: FDA-Public Use
  Company Number: PR-GLAXOSMITHKLINE-A1088522A

PATIENT
  Age: 20 Year
  Sex: Female

DRUGS (1)
  1. LAMOTRIGINE. [Suspect]
     Active Substance: LAMOTRIGINE
     Indication: EPILEPSY
     Dosage: 25MG UNKNOWN
     Route: 065

REACTIONS (15)
  - Renal disorder [Unknown]
  - General physical health deterioration [Unknown]
  - Myalgia [Unknown]
  - Polycystic ovaries [Unknown]
  - Constipation [Unknown]
  - Nausea [Unknown]
  - Endometriosis [Unknown]
  - Convulsion [Unknown]
  - Hypersensitivity [Unknown]
  - Dizziness [Unknown]
  - Scoliosis [Unknown]
  - Gastritis [Unknown]
  - Hypothyroidism [Unknown]
  - Headache [Unknown]
  - Adverse drug reaction [Unknown]
